FAERS Safety Report 6470007-1 (Version None)
Quarter: 2009Q4

REPORT INFORMATION
  Report Type: 
  Country: None (occurrence: None)
  Receive Date: 20091203
  Receipt Date: 20091125
  Transmission Date: 20100525
  Serious: Yes (Hospitalization)
  Sender: FDA-Public Use
  Company Number: GB-PFIZER INC-2009303075

PATIENT
  Age: 48 Year
  Sex: Female

DRUGS (11)
  1. ZYVOX [Suspect]
     Dosage: 600 MG, 2X/DAY
     Route: 042
  2. ZYVOX [Suspect]
     Dosage: UNK
     Route: 048
  3. CLINDAMYCIN [Concomitant]
     Dosage: UNK
     Route: 042
     Dates: start: 20091101
  4. PARACETAMOL [Concomitant]
  5. IBUPROFEN [Concomitant]
  6. CODEINE [Concomitant]
  7. OMEPRAZOLE [Concomitant]
  8. DIFFLAM [Concomitant]
  9. POTASSIUM PERMANGANATE [Concomitant]
  10. MEROPENEM [Concomitant]
  11. CHLORHEXIDINE [Concomitant]

REACTIONS (1)
  - BLOOD POTASSIUM INCREASED [None]
